FAERS Safety Report 9559137 (Version 2)
Quarter: 2014Q1

REPORT INFORMATION
  Report Type: Report from Study
  Country: DE (occurrence: DE)
  Receive Date: 20130927
  Receipt Date: 20140221
  Transmission Date: 20141002
  Serious: Yes (Hospitalization)
  Sender: FDA-Public Use
  Company Number: DE-AMGEN-DEUCT2013067783

PATIENT
  Age: 59 Year
  Sex: Male

DRUGS (19)
  1. ETANERCEPT [Suspect]
     Indication: PRODUCT USED FOR UNKNOWN INDICATION
     Dosage: 50 MG, WEEKLY
     Route: 065
     Dates: start: 20120328, end: 20130703
  2. ETANERCEPT [Suspect]
     Dosage: 50 MG, WEEKLY
     Route: 065
     Dates: start: 20130814
  3. MTX                                /00113802/ [Concomitant]
     Dosage: 20 MG, WEEKLY
     Dates: start: 201012, end: 20130705
  4. MTX                                /00113802/ [Concomitant]
     Dosage: 20 MG, WEEKLY
     Dates: start: 20130814
  5. PARACETAMOL [Concomitant]
     Dosage: UNK
  6. AMLODIPINE [Concomitant]
     Dosage: UNK
  7. METFORMIN [Concomitant]
     Dosage: UNK
  8. FOLIC ACID [Concomitant]
     Dosage: UNK
  9. PANTOZOL                           /01263204/ [Concomitant]
     Dosage: UNK
  10. VALORON                            /00205402/ [Concomitant]
     Dosage: UNK
  11. GLIMEPIRID [Concomitant]
     Dosage: UNK
  12. NOVORAPID [Concomitant]
     Dosage: UNK
  13. RAMIPRIL [Concomitant]
     Dosage: UNK
  14. TORASEMIDE [Concomitant]
     Dosage: UNK
  15. NOVALGIN                           /06276704/ [Concomitant]
     Dosage: UNK
  16. SIMVA [Concomitant]
     Dosage: UNK
  17. ARCOXIA [Concomitant]
     Dosage: UNK
  18. VIGANTOLETTEN [Concomitant]
     Dosage: UNK
  19. PREDNISOLONE [Concomitant]
     Dosage: UNK

REACTIONS (1)
  - Post procedural infection [Not Recovered/Not Resolved]
